FAERS Safety Report 22596641 (Version 1)
Quarter: 2023Q2

REPORT INFORMATION
  Report Type: Spontaneous
  Country: AU (occurrence: AU)
  Receive Date: 20230613
  Receipt Date: 20230613
  Transmission Date: 20230721
  Serious: Yes (Other)
  Sender: FDA-Public Use
  Company Number: AU-NAPPMUNDI-GBR-2023-0108341

PATIENT
  Sex: Female

DRUGS (1)
  1. NORSPAN [Suspect]
     Active Substance: BUPRENORPHINE
     Indication: Phantom limb syndrome
     Dosage: 15MCG/HR ONCE A WEEK TRANSDERMAL
     Route: 062

REACTIONS (5)
  - Skin reaction [Not Recovered/Not Resolved]
  - Application site rash [Not Recovered/Not Resolved]
  - Application site pruritus [Not Recovered/Not Resolved]
  - Application site erosion [Not Recovered/Not Resolved]
  - Rash papular [Not Recovered/Not Resolved]
